FAERS Safety Report 13978549 (Version 2)
Quarter: 2018Q1

REPORT INFORMATION
  Report Type: Spontaneous
  Country: US (occurrence: US)
  Receive Date: 20170914
  Receipt Date: 20180320
  Transmission Date: 20180508
  Serious: Yes (Other)
  Sender: FDA-Public Use
  Company Number: US-ASTELLAS-2017US020665

PATIENT
  Sex: Male

DRUGS (3)
  1. XTANDI [Suspect]
     Active Substance: ENZALUTAMIDE
     Indication: PROSTATE CANCER
     Route: 065
  2. XTANDI [Suspect]
     Active Substance: ENZALUTAMIDE
     Dosage: UNK UNK, THRICE DAILY
     Route: 065
  3. XTANDI [Suspect]
     Active Substance: ENZALUTAMIDE
     Route: 065

REACTIONS (10)
  - Dysarthria [Unknown]
  - Skin burning sensation [Unknown]
  - Joint swelling [Unknown]
  - Disorientation [Unknown]
  - Hallucination [Unknown]
  - Constipation [Unknown]
  - Dizziness [Unknown]
  - Alopecia [Unknown]
  - Inappropriate schedule of drug administration [Unknown]
  - Cough [Unknown]
